FAERS Safety Report 25610658 (Version 2)
Quarter: 2025Q3

REPORT INFORMATION
  Report Type: Spontaneous
  Country: US (occurrence: US)
  Receive Date: 20250728
  Receipt Date: 20250805
  Transmission Date: 20251021
  Serious: Yes (Death, Other)
  Sender: SANDOZ
  Company Number: US-SANDOZ-SDZ2025US053743

PATIENT
  Age: 50 Year
  Sex: Male

DRUGS (1)
  1. CEFTRIAXONE [Suspect]
     Active Substance: CEFTRIAXONE
     Indication: Product used for unknown indication
     Route: 065
     Dates: start: 20250226

REACTIONS (1)
  - Drug-induced liver injury [Fatal]

NARRATIVE: CASE EVENT DATE: 20250412
